FAERS Safety Report 14656468 (Version 1)
Quarter: 2018Q1

REPORT INFORMATION
  Report Type: Spontaneous
  Country: US (occurrence: US)
  Receive Date: 20180319
  Receipt Date: 20180319
  Transmission Date: 20180509
  Serious: No
  Sender: FDA-Public Use
  Company Number: PHEH2018US010149

PATIENT
  Sex: Female

DRUGS (2)
  1. ASPIRIN. [Concomitant]
     Active Substance: ASPIRIN
     Indication: PRODUCT USED FOR UNKNOWN INDICATION
     Route: 065
  2. TEGRETOL [Suspect]
     Active Substance: CARBAMAZEPINE
     Indication: PRODUCT USED FOR UNKNOWN INDICATION
     Route: 065

REACTIONS (11)
  - Liver disorder [Unknown]
  - Fall [Unknown]
  - Headache [Unknown]
  - Peripheral swelling [Unknown]
  - Lower limb fracture [Unknown]
  - Movement disorder [Unknown]
  - Head injury [Unknown]
  - Swelling [Unknown]
  - Renal disorder [Unknown]
  - Feeding disorder [Unknown]
  - Gait inability [Unknown]
